FAERS Safety Report 8369513-4 (Version None)
Quarter: 2012Q2

REPORT INFORMATION
  Report Type: 
  Country: None (occurrence: None)
  Receive Date: 20120518
  Receipt Date: 20120509
  Transmission Date: 20120825
  Serious: Yes (Hospitalization)
  Sender: FDA-Public Use
  Company Number: US-JNJFOC-20120412540

PATIENT
  Sex: Female
  Weight: 54.43 kg

DRUGS (7)
  1. XARELTO [Suspect]
     Indication: HIP ARTHROPLASTY
     Route: 048
     Dates: end: 20120101
  2. CALCIUM [Concomitant]
  3. OXYCODONE HCL [Concomitant]
  4. XARELTO [Suspect]
     Indication: THROMBOSIS PROPHYLAXIS
     Route: 048
     Dates: end: 20120101
  5. CLARITIN [Concomitant]
  6. SYNTHROID [Concomitant]
  7. MULTIVITAMIN [Concomitant]

REACTIONS (1)
  - HAEMATOMA [None]
